FAERS Safety Report 4401329-3 (Version None)
Quarter: 2004Q3

REPORT INFORMATION
  Report Type: 
  Country: None (occurrence: None)
  Receive Date: 20040907
  Receipt Date: 20040312
  Transmission Date: 20050211
  Serious: No
  Sender: FDA-Public Use
  Company Number: US-BRISTOL-MYERS SQUIBB COMPANY-12531760

PATIENT
  Age: 82 Year
  Sex: Male
  Weight: 83 kg

DRUGS (4)
  1. COUMADIN [Suspect]
     Indication: DEEP VEIN THROMBOSIS
     Route: 048
     Dates: start: 20030506
  2. PRAVACHOL [Concomitant]
     Dosage: APPROXIMATELY 40 DAY DURATION
  3. PEPCID [Concomitant]
  4. MULTIVITAMIN [Concomitant]

REACTIONS (2)
  - BLOOD BLISTER [None]
  - INTERNATIONAL NORMALISED RATIO ABNORMAL [None]
